FAERS Safety Report 8363101-1 (Version None)
Quarter: 2012Q2

REPORT INFORMATION
  Report Type: 
  Country: None (occurrence: None)
  Receive Date: 20120516
  Receipt Date: 20120504
  Transmission Date: 20120825
  Serious: Yes (Hospitalization)
  Sender: FDA-Public Use
  Company Number: IT-ASTRAZENECA-2012SE28964

PATIENT
  Sex: Female

DRUGS (2)
  1. OTHER DRUGS [Concomitant]
  2. ATENOLOL [Suspect]
     Route: 065

REACTIONS (3)
  - BRADYKINESIA [None]
  - BRADYPHRENIA [None]
  - SOMNOLENCE [None]
